FAERS Safety Report 9471583 (Version 1)
Quarter: 2013Q3

REPORT INFORMATION
  Report Type: Spontaneous
  Country: US (occurrence: None)
  Receive Date: 20130819
  Receipt Date: 20130819
  Transmission Date: 20140515
  Serious: Yes (Life-Threatening, Hospitalization)
  Sender: FDA-Public Use
  Company Number: DAV-AE-ALP-13-20

PATIENT
  Age: 64 Year
  Sex: Female

DRUGS (5)
  1. ALPRAZOLAM [Suspect]
     Indication: MAJOR DEPRESSION
  2. KETAMINE [Concomitant]
  3. FLUVOXAMINE [Concomitant]
  4. RILUZOLE [Concomitant]
  5. N-ACETYLCYSTEINE [Concomitant]

REACTIONS (8)
  - Suicidal ideation [None]
  - Dysphoria [None]
  - Anxiety [None]
  - Drug interaction [None]
  - Infusion related reaction [None]
  - Nausea [None]
  - Paraesthesia [None]
  - Depersonalisation [None]
